FAERS Safety Report 20031725 (Version 4)
Quarter: 2021Q4

REPORT INFORMATION
  Report Type: Report from Study
  Country: CH (occurrence: CH)
  Receive Date: 20211103
  Receipt Date: 20211201
  Transmission Date: 20220304
  Serious: Yes (Hospitalization, Disabling, Other)
  Sender: FDA-Public Use
  Company Number: CH-ABBVIE-20K-151-3587954-00

PATIENT
  Age: 75 Year
  Sex: Male
  Weight: 115 kg

DRUGS (21)
  1. SKYRIZI [Suspect]
     Active Substance: RISANKIZUMAB-RZAA
     Indication: Psoriasis
     Route: 058
     Dates: start: 20200212, end: 20210607
  2. SKYRIZI [Suspect]
     Active Substance: RISANKIZUMAB-RZAA
     Route: 058
     Dates: start: 2021
  3. ASPIRIN [Concomitant]
     Active Substance: ASPIRIN
     Indication: Product used for unknown indication
     Route: 065
     Dates: start: 20190101, end: 20210828
  4. ALLOPURINOL [Concomitant]
     Active Substance: ALLOPURINOL
     Indication: Product used for unknown indication
     Dates: start: 20110101
  5. ROSUVASTATIN [Concomitant]
     Active Substance: ROSUVASTATIN
     Indication: Product used for unknown indication
     Dates: start: 20090101
  6. DAFALGAN [Concomitant]
     Active Substance: ACETAMINOPHEN
     Indication: Pain in extremity
     Dosage: AS NEEDED
     Dates: start: 20200609
  7. CLOBETASOL [Concomitant]
     Active Substance: CLOBETASOL
     Indication: Psoriasis
     Dosage: 60 G TUBE
     Dates: start: 20200705, end: 20200905
  8. PANTOZOL [Concomitant]
     Active Substance: PANTOPRAZOLE SODIUM
     Indication: Product used for unknown indication
     Dates: start: 20210727
  9. CLOPIDOGREL [Concomitant]
     Active Substance: CLOPIDOGREL BISULFATE
     Indication: Product used for unknown indication
     Dosage: CLOPIDOGREL SANDOZ ECO
     Dates: start: 20210727, end: 20210728
  10. TORSEMIDE [Concomitant]
     Active Substance: TORSEMIDE
     Indication: Product used for unknown indication
     Dates: start: 20210727
  11. BISOPROLOL FUMARATE [Concomitant]
     Active Substance: BISOPROLOL FUMARATE
     Indication: Product used for unknown indication
     Dates: start: 20210727
  12. RAMIPRIL [Concomitant]
     Active Substance: RAMIPRIL
     Indication: Product used for unknown indication
     Dates: start: 20210727
  13. ELIQUIS [Concomitant]
     Active Substance: APIXABAN
     Indication: Product used for unknown indication
     Dosage: 1X MORNING, 1X EVENING
     Dates: start: 20210727
  14. ATORVASTATIN [Concomitant]
     Active Substance: ATORVASTATIN
     Indication: Product used for unknown indication
  15. ATORVASTATIN [Concomitant]
     Active Substance: ATORVASTATIN
  16. BETADINE [Concomitant]
     Active Substance: POVIDONE-IODINE
     Indication: Product used for unknown indication
  17. ALLOPURINOL [Concomitant]
     Active Substance: ALLOPURINOL
     Indication: Product used for unknown indication
     Dosage: 1 X MORNING
  18. PIPERACILLIN AND TAZOBACTAM [Concomitant]
     Active Substance: PIPERACILLIN SODIUM\TAZOBACTAM SODIUM
     Indication: Product used for unknown indication
     Dates: start: 20210731, end: 20210804
  19. AUGMENTIN [Concomitant]
     Active Substance: AMOXICILLIN\CLAVULANATE POTASSIUM
     Indication: Product used for unknown indication
     Route: 048
     Dates: start: 20210705, end: 20210807
  20. NITROGLYCERIN [Concomitant]
     Active Substance: NITROGLYCERIN
     Indication: Product used for unknown indication
     Dates: start: 20210707, end: 20210728
  21. ROSUVASTATIN [Concomitant]
     Active Substance: ROSUVASTATIN
     Indication: Product used for unknown indication
     Dates: start: 20090101

REACTIONS (33)
  - Hypotension [Unknown]
  - Renal tubular necrosis [Unknown]
  - Left ventricular dysfunction [Not Recovered/Not Resolved]
  - Lung infiltration [Unknown]
  - Pneumonia [Unknown]
  - Chronic obstructive pulmonary disease [Recovered/Resolved with Sequelae]
  - Pneumonia aspiration [Unknown]
  - Myocardial infarction [Recovered/Resolved with Sequelae]
  - Myocardial infarction [Recovered/Resolved]
  - Haemorrhage [Unknown]
  - Nystagmus [Recovered/Resolved with Sequelae]
  - Deafness [Recovering/Resolving]
  - Pulmonary oedema [Unknown]
  - Urinary tract infection [Unknown]
  - Vestibular disorder [Unknown]
  - Haematoma [Unknown]
  - Pain in extremity [Recovered/Resolved]
  - Fall [Recovered/Resolved]
  - Leukocyturia [Unknown]
  - Weight decreased [Unknown]
  - Haemoglobin decreased [Unknown]
  - Anaemia [Unknown]
  - Iron deficiency [Unknown]
  - Renal cyst [Unknown]
  - Bacteriuria [Unknown]
  - Vertigo [Unknown]
  - Glucose tolerance impaired [Unknown]
  - Vibration test abnormal [Unknown]
  - Hyperuricaemia [Unknown]
  - Nail discolouration [Unknown]
  - Seborrhoea [Unknown]
  - Rhinitis [Recovered/Resolved]
  - Rhinitis [Recovered/Resolved]

NARRATIVE: CASE EVENT DATE: 20200312
